FAERS Safety Report 10455354 (Version 1)
Quarter: 2014Q3

REPORT INFORMATION
  Report Type: Spontaneous
  Country: ES (occurrence: ES)
  Receive Date: 20140916
  Receipt Date: 20140916
  Transmission Date: 20150326
  Serious: Yes (Other)
  Sender: FDA-Public Use
  Company Number: ES-AUROBINDO-AUR-APL-2014-09796

PATIENT
  Age: 37 Year
  Sex: Male

DRUGS (1)
  1. OLANZAPINE 10MG [Suspect]
     Active Substance: OLANZAPINE
     Indication: PSYCHOTIC DISORDER
     Dosage: 10 MG, DAILY
     Route: 048

REACTIONS (34)
  - Somatisation disorder [Unknown]
  - Hallucination, auditory [Unknown]
  - Nervousness [Unknown]
  - Language disorder [Unknown]
  - Hyporesponsive to stimuli [Unknown]
  - Suspiciousness [Unknown]
  - Impulsive behaviour [Unknown]
  - Depression [Unknown]
  - Somnolence [Unknown]
  - Hallucination [Unknown]
  - Therapeutic response decreased [Unknown]
  - Obsessive-compulsive disorder [Unknown]
  - Schizoid personality disorder [Unknown]
  - Intellectualisation [Unknown]
  - Aggression [Unknown]
  - Fear [Unknown]
  - Psychiatric symptom [Unknown]
  - Insomnia [Unknown]
  - Intentional product misuse [Unknown]
  - Bradyphrenia [Unknown]
  - Irritability [Unknown]
  - Labelled drug-drug interaction medication error [Unknown]
  - Paranoia [Unknown]
  - Tension [Unknown]
  - Panic attack [Unknown]
  - Delusion [Unknown]
  - Alcohol use [Unknown]
  - Tremor [Unknown]
  - Anxiety [Unknown]
  - Condition aggravated [Unknown]
  - Social avoidant behaviour [Unknown]
  - Tobacco user [Unknown]
  - Psychotic behaviour [Unknown]
  - Hostility [Unknown]
